FAERS Safety Report 11965682 (Version 1)
Quarter: 2016Q1

REPORT INFORMATION
  Report Type: Report from Study
  Country: PH (occurrence: PH)
  Receive Date: 20160127
  Receipt Date: 20160127
  Transmission Date: 20160526
  Serious: Yes (Death, Hospitalization)
  Sender: FDA-Public Use
  Company Number: PHHY2016PH009131

PATIENT
  Sex: Female

DRUGS (1)
  1. TASIGNA [Suspect]
     Active Substance: NILOTINIB
     Indication: CHRONIC MYELOID LEUKAEMIA
     Dosage: 800 MG, QD
     Route: 048
     Dates: end: 20160105

REACTIONS (5)
  - Chronic myeloid leukaemia [Fatal]
  - Uterine mass [Fatal]
  - Abdominal distension [Fatal]
  - Haemorrhage [Fatal]
  - Rash [Fatal]
